FAERS Safety Report 10049523 (Version 2)
Quarter: 2014Q2

REPORT INFORMATION
  Report Type: Spontaneous
  Country: FI (occurrence: FI)
  Receive Date: 20140401
  Receipt Date: 20140401
  Transmission Date: 20141212
  Serious: Yes (Hospitalization)
  Sender: FDA-Public Use
  Company Number: FI-ELI_LILLY_AND_COMPANY-FI201311005548

PATIENT
  Sex: Female

DRUGS (4)
  1. ZYPREXA [Suspect]
     Indication: SCHIZOAFFECTIVE DISORDER
     Dosage: 20 MG, QD
     Route: 048
     Dates: start: 20111013
  2. ZYPREXA [Suspect]
     Dosage: 30 MG, UNKNOWN
     Route: 048
     Dates: end: 20131110
  3. SERONIL [Concomitant]
     Indication: PRODUCT USED FOR UNKNOWN INDICATION
     Dosage: 40 MG, QD
     Route: 065
  4. DIAPAM                             /00017001/ [Concomitant]
     Indication: PRODUCT USED FOR UNKNOWN INDICATION
     Dosage: 25 MG, QD
     Route: 065

REACTIONS (2)
  - Psychotic disorder [Unknown]
  - Overdose [Recovered/Resolved]
